FAERS Safety Report 18526948 (Version 2)
Quarter: 2020Q4

REPORT INFORMATION
  Report Type: Spontaneous
  Country: US (occurrence: US)
  Receive Date: 20201120
  Receipt Date: 20201202
  Transmission Date: 20210114
  Serious: No
  Sender: FDA-Public Use
  Company Number: US-CELGENEUS-USA-20201104155

PATIENT
  Sex: Female
  Weight: 69.46 kg

DRUGS (1)
  1. ZEPOSIA [Suspect]
     Active Substance: OZANIMOD HYDROCHLORIDE
     Indication: MULTIPLE SCLEROSIS
     Dosage: .92 MILLIGRAM
     Route: 048

REACTIONS (3)
  - Cognitive disorder [Unknown]
  - Unevaluable event [Unknown]
  - Stress [Unknown]

NARRATIVE: CASE EVENT DATE: 2019
